FAERS Safety Report 13083004 (Version 1)
Quarter: 2017Q1

REPORT INFORMATION
  Report Type: Spontaneous
  Country: US (occurrence: US)
  Receive Date: 20170104
  Receipt Date: 20170104
  Transmission Date: 20170428
  Serious: No
  Sender: FDA-Public Use
  Company Number: US-BIOGEN-2016BI00335803

PATIENT
  Sex: Female

DRUGS (1)
  1. AVONEX [Suspect]
     Active Substance: INTERFERON BETA-1A
     Indication: MULTIPLE SCLEROSIS
     Route: 065
     Dates: start: 20091023

REACTIONS (6)
  - Treatment noncompliance [Unknown]
  - Depressed mood [Unknown]
  - Anxiety [Unknown]
  - Memory impairment [Unknown]
  - General symptom [Unknown]
  - Emotional disorder [Unknown]
